FAERS Safety Report 6707247-X (Version None)
Quarter: 2010Q2

REPORT INFORMATION
  Report Type: 
  Country: None (occurrence: None)
  Receive Date: 20100503
  Receipt Date: 20090318
  Transmission Date: 20101027
  Serious: No
  Sender: FDA-Public Use
  Company Number: US-ASTRAZENECA-2009UW07007

PATIENT

DRUGS (1)
  1. NEXIUM [Suspect]
     Route: 048

REACTIONS (5)
  - CHILLS [None]
  - GREY SYNDROME NEONATAL [None]
  - PYREXIA [None]
  - SERUM SICKNESS [None]
  - TREMOR [None]
